FAERS Safety Report 16531927 (Version 2)
Quarter: 2019Q3

REPORT INFORMATION
  Report Type: Report from Study
  Country: CN (occurrence: CN)
  Receive Date: 20190705
  Receipt Date: 20190717
  Transmission Date: 20191004
  Serious: Yes (Hospitalization)
  Sender: FDA-Public Use
  Company Number: CN-ROCHE-2346400

PATIENT
  Age: 45 Year
  Sex: Female
  Weight: 51 kg

DRUGS (8)
  1. DOCETAXEL. [Suspect]
     Active Substance: DOCETAXEL
     Indication: HER-2 POSITIVE BREAST CANCER
     Dosage: DATE OF MOST RECENT DOSE OF DOCETAXEL PRIOR TO AE ONSET 14/DEC/2016 (110 MG)
     Route: 042
     Dates: start: 20161013
  2. EPIRUBICIN HYDROCHLORIDE. [Suspect]
     Active Substance: EPIRUBICIN HYDROCHLORIDE
     Indication: HER-2 POSITIVE BREAST CANCER
     Dosage: DATE OF MOST RECENT DOSE OF EPIRUBICIN PRIOR TO AE ONSET  21/MAR/2017: 150 MG
     Route: 042
     Dates: start: 20170207
  3. CYCLOPHOSPHAMIDE. [Suspect]
     Active Substance: CYCLOPHOSPHAMIDE
     Indication: HER-2 POSITIVE BREAST CANCER
     Dosage: DATE OF MOST RECENT DOSE OF CYCLOPHOSPHAMIDE PRIOR TO AE ONSET 21/MAR/2017: 150 MG
     Route: 042
     Dates: start: 20170207
  4. ONDANSETRON [Concomitant]
     Active Substance: ONDANSETRON
     Route: 065
     Dates: start: 201702, end: 2017
  5. ASPIRIN [ACETYLSALICYLIC ACID] [Concomitant]
     Active Substance: ASPIRIN
     Indication: NASOPHARYNGITIS
     Route: 065
     Dates: start: 2017, end: 2017
  6. PERTUZUMAB. [Suspect]
     Active Substance: PERTUZUMAB
     Indication: HER-2 POSITIVE BREAST CANCER
     Dosage: DATE OF MOST RECENT DOSE OF PERTUZUMAB/PLACEBO PRIOR TO AE ONSET 21/DEC/2017
     Route: 042
     Dates: start: 20161013
  7. TRASTUZUMAB. [Suspect]
     Active Substance: TRASTUZUMAB
     Indication: HER-2 POSITIVE BREAST CANCER
     Dosage: INITIAL DOSE: 8 MG/KG, EVERY 3 WEEKS (CYCLE 1, LOADING DOSE AS PER PROTOCOL) FOLLOWED BY MAINTENANCE
     Route: 042
     Dates: start: 20161013
  8. FLUOROURACIL. [Suspect]
     Active Substance: FLUOROURACIL
     Indication: HER-2 POSITIVE BREAST CANCER
     Dosage: DATE OF MOST RECENT DOSE OF 5-FU PRIOR TO AE ONSET 21/MAR/2017: (750 MG)
     Route: 042
     Dates: start: 20170207

REACTIONS (1)
  - Anaemia [Recovered/Resolved]

NARRATIVE: CASE EVENT DATE: 20180626
